FAERS Safety Report 14182505 (Version 1)
Quarter: 2017Q4

REPORT INFORMATION
  Report Type: Spontaneous
  Country: US (occurrence: US)
  Receive Date: 20171113
  Receipt Date: 20171113
  Transmission Date: 20180321
  Serious: No
  Sender: FDA-Public Use
  Company Number: US-PFIZER INC-2014133677

PATIENT
  Age: 60 Year
  Sex: Female

DRUGS (2)
  1. PREMPRO [Suspect]
     Active Substance: ESTROGENS, CONJUGATED\MEDROXYPROGESTERONE ACETATE
     Dosage: 0.3/1.5, UNK
     Dates: end: 20160126
  2. PREMPRO [Suspect]
     Active Substance: ESTROGENS, CONJUGATED\MEDROXYPROGESTERONE ACETATE
     Indication: HORMONE REPLACEMENT THERAPY
     Dosage: 20 MG, UNK

REACTIONS (6)
  - Product use issue [Unknown]
  - Abdominal pain upper [Unknown]
  - Headache [Unknown]
  - Intentional product misuse [Not Recovered/Not Resolved]
  - Insomnia [Unknown]
  - Emotional disorder [Unknown]
